FAERS Safety Report 13960471 (Version 1)
Quarter: 2017Q3

REPORT INFORMATION
  Report Type: Report from Study
  Country: DE (occurrence: DE)
  Receive Date: 20170912
  Receipt Date: 20170912
  Transmission Date: 20171128
  Serious: Yes (Hospitalization, Other)
  Sender: FDA-Public Use
  Company Number: DE-SHIRE-DE201717371

PATIENT

DRUGS (5)
  1. HUMAN IMMUNOGLOBULIN; HYALURONIDASE [Suspect]
     Active Substance: HUMAN IMMUNOGLOBULIN G\HYALURONIDASE RECOMBINANT HUMAN
     Indication: SELECTIVE IGG SUBCLASS DEFICIENCY
     Dosage: 30 G, 1X A MONTH
     Route: 058
     Dates: start: 20170529, end: 20170904
  2. NOVALGIN [Suspect]
     Active Substance: METAMIZOLE SODIUM
     Indication: HEADACHE
     Dosage: UNK, AS REQ^D
     Route: 048
  3. HUMAN IMMUNOGLOBULIN; HYALURONIDASE [Suspect]
     Active Substance: HUMAN IMMUNOGLOBULIN G\HYALURONIDASE RECOMBINANT HUMAN
     Dosage: 10 G, EVERY 4 WK
     Route: 058
     Dates: start: 20170529
  4. NOVALGIN [Suspect]
     Active Substance: METAMIZOLE SODIUM
     Indication: PYREXIA
  5. HUMAN IMMUNOGLOBULIN; HYALURONIDASE [Suspect]
     Active Substance: HUMAN IMMUNOGLOBULIN G\HYALURONIDASE RECOMBINANT HUMAN
     Dosage: 5 G, EVERY 4 WK
     Route: 058
     Dates: start: 20170529

REACTIONS (17)
  - Pyrexia [Recovered/Resolved]
  - Myalgia [Recovering/Resolving]
  - Hyperacusis [Recovering/Resolving]
  - Headache [Recovered/Resolved]
  - Paraesthesia [Recovering/Resolving]
  - Peripheral swelling [Recovering/Resolving]
  - Neck pain [Recovering/Resolving]
  - Dyspnoea [Recovering/Resolving]
  - Obstructive airways disorder [Recovering/Resolving]
  - Asthenia [Recovering/Resolving]
  - Mouth swelling [Recovering/Resolving]
  - Paraesthesia oral [Recovering/Resolving]
  - Anaphylactic shock [Recovered/Resolved]
  - Chills [Recovered/Resolved]
  - Nausea [Recovering/Resolving]
  - Cold sweat [Recovering/Resolving]
  - Somnolence [Recovering/Resolving]

NARRATIVE: CASE EVENT DATE: 20170721
